FAERS Safety Report 7532800-3 (Version None)
Quarter: 2011Q2

REPORT INFORMATION
  Report Type: 
  Country: None (occurrence: None)
  Receive Date: 20110608
  Receipt Date: 20110601
  Transmission Date: 20111010
  Serious: Yes (Hospitalization)
  Sender: FDA-Public Use
  Company Number: B0724734A

PATIENT
  Age: 27 Year
  Sex: Female
  Weight: 65 kg

DRUGS (6)
  1. LAMICTAL [Suspect]
     Route: 048
     Dates: start: 20110225, end: 20110308
  2. TRAZODONE HCL [Concomitant]
     Dosage: 100MG PER DAY
     Route: 048
     Dates: start: 20110206, end: 20110209
  3. VALDOXAN [Suspect]
     Dosage: 25MG PER DAY
     Route: 048
     Dates: start: 20110210, end: 20110214
  4. TRAZODONE HCL [Concomitant]
     Dosage: 50MG PER DAY
     Route: 048
     Dates: end: 20110205
  5. VALDOXAN [Suspect]
     Dosage: 50MG PER DAY
     Route: 048
     Dates: start: 20110215
  6. SEROQUEL XR [Concomitant]
     Dosage: 50MG PER DAY
     Route: 048
     Dates: start: 20110215, end: 20110228

REACTIONS (2)
  - NIGHTMARE [None]
  - HALLUCINATION, VISUAL [None]
